FAERS Safety Report 8410338-9 (Version None)
Quarter: 2012Q2

REPORT INFORMATION
  Report Type: 
  Country: None (occurrence: None)
  Receive Date: 20120323
  Receipt Date: 20111202
  Transmission Date: 20120825
  Serious: Yes (Hospitalization)
  Sender: FDA-Public Use
  Company Number: 163-21880-11120477

PATIENT
  Age: 58 Year
  Sex: Female

DRUGS (13)
  1. LIPITOR [Concomitant]
  2. REVLIMID [Suspect]
     Indication: MULTIPLE MYELOMA
     Dosage: 25 MG, QD X 21 DAYS THEN 7 DAYS OFF, PO
     Route: 048
     Dates: start: 20111103
  3. NYSTATIN [Concomitant]
  4. DOCUSATE (DOCUSATE) [Concomitant]
  5. ACETAMINOPHEN [Concomitant]
  6. LOSARTAN POTASSIUM [Concomitant]
  7. DEXAMETHASONE [Concomitant]
  8. HUMALOG [Concomitant]
  9. LEVOTHYROXINE SODIUM [Concomitant]
  10. MORPHINE [Concomitant]
  11. LASIX [Concomitant]
  12. BUPROPION HCL [Concomitant]
  13. LANTUS [Concomitant]

REACTIONS (2)
  - THROMBOSIS [None]
  - BLOOD GLUCOSE INCREASED [None]
